FAERS Safety Report 8494120-2 (Version None)
Quarter: 2012Q3

REPORT INFORMATION
  Report Type: 
  Country: None (occurrence: None)
  Receive Date: 20120702
  Receipt Date: 20120702
  Transmission Date: 20120928
  Serious: Yes (Other)
  Sender: FDA-Public Use
  Company Number: None

PATIENT
  Sex: Female
  Weight: 77.1115 kg

DRUGS (1)
  1. OXYBUTYNIN [Suspect]
     Indication: HYPERTONIC BLADDER
     Dosage: 30 TAB
     Dates: start: 20110802, end: 20110906

REACTIONS (2)
  - MUSCULOSKELETAL DISORDER [None]
  - PAIN [None]
